FAERS Safety Report 10540997 (Version 1)
Quarter: 2014Q4

REPORT INFORMATION
  Report Type: Spontaneous
  Country: US (occurrence: None)
  Receive Date: 20141010
  Receipt Date: 20141010
  Transmission Date: 20150529
  Serious: Yes (Other)
  Sender: FDA-Public Use
  Company Number: 163-POMAL-14055058

PATIENT
  Age: 77 Year
  Sex: Male
  Weight: 79.38 kg

DRUGS (25)
  1. DEXAMETHASONE (DEXAMETHASONE) (UNKNOWN) [Concomitant]
     Active Substance: DEXAMETHASONE
  2. FUROSEMIDE (FUROSEMIDE) (TABLETS) [Concomitant]
  3. OMEPRAZOLE (OMEPRAZOLE) (UNKNOWN) [Concomitant]
  4. Q 10 (UBIDECARENONE) (UNKNOWN) [Concomitant]
  5. FIBER (POLYCARBOPHIL CALCIUM) (UNKNOWN) [Concomitant]
  6. MIRALAX (MACROGOL) (UNKNOWN) [Concomitant]
  7. URSODIOL (URSODEOXYCHOLIC ACID) (TABLETS) [Concomitant]
  8. ASPRIN [Concomitant]
     Active Substance: ASPIRIN
  9. PROBIATA (LACTOBACILLUS ACIDOPHILUS) (UNKNOWN) [Concomitant]
  10. GABAPENTIN (GABAPENTIN (UNKNOWN) [Concomitant]
  11. LISINOPRIL (LISINOPRIL) (TABLETS) [Concomitant]
  12. POMALYST [Suspect]
     Active Substance: POMALIDOMIDE
     Indication: PLASMA CELL MYELOMA
     Dosage: 4 MG, 21 IN 21 D, PO
     Route: 048
     Dates: start: 20130313
  13. FINASTERIDE (FINASTERIDE) (UNKNOWN) [Concomitant]
  14. VICOPROFEN (VICOPROFEN) (UNKNOWN) [Concomitant]
  15. SYNTHROID (LEVOTHYROXINE SODIUM) (TABLETS) [Concomitant]
  16. FENTANYL (FENTANYL) (TABLETS) [Concomitant]
  17. PRAVASTATIN SODIUM (PRAVASTATIN SODIUM) (UNKNOWN) [Concomitant]
  18. OXYBUTYNIN (OXYBUTYNIN) (UNKNOWN) [Concomitant]
  19. FLOMAX (TAMSULOSIN HYDROCHLORIDE) (UNKNOWN) [Concomitant]
  20. VITAMIN C (ASCORBIC ACID) (UNKNOWN) [Concomitant]
  21. BACTRIM [Concomitant]
     Active Substance: SULFAMETHOXAZOLE\TRIMETHOPRIM
  22. B COMPLEX (BECOSYN FORTE) (UNKNOWN) [Concomitant]
  23. CARENATE (OTHER THERAPEUTIC PRODUCTS) (UNKNOWN) [Concomitant]
  24. CLOPIDOGREL (CLOPIDOGREL) (UNKNOWN) [Concomitant]
  25. SENNA (SENNA) (UNKNOWN) [Concomitant]

REACTIONS (1)
  - Hypotension [None]
